FAERS Safety Report 13604354 (Version 1)
Quarter: 2017Q2

REPORT INFORMATION
  Report Type: Spontaneous
  Country: US (occurrence: US)
  Receive Date: 20170601
  Receipt Date: 20170601
  Transmission Date: 20170830
  Serious: No
  Sender: FDA-Public Use
  Company Number: None

PATIENT
  Age: 68 Year
  Sex: Female
  Weight: 72 kg

DRUGS (18)
  1. CARDIZEM CD [Concomitant]
     Active Substance: DILTIAZEM HYDROCHLORIDE
  2. OMAPRAZOLE [Concomitant]
  3. SPIRONOLACTONE. [Concomitant]
     Active Substance: SPIRONOLACTONE
  4. FLUTICASONE NASAL SPRAY [Concomitant]
     Active Substance: FLUTICASONE
  5. CALCIUM CITRATE [Concomitant]
     Active Substance: CALCIUM CITRATE
  6. MULTIVITAMIN [Concomitant]
     Active Substance: VITAMINS
  7. VITAMIN C [Concomitant]
     Active Substance: ASCORBIC ACID
  8. MAGNESIUM [Concomitant]
     Active Substance: MAGNESIUM
  9. PROBIOTIC [Concomitant]
     Active Substance: PROBIOTICS NOS
  10. TYLENOL [Concomitant]
     Active Substance: ACETAMINOPHEN
  11. COQ10 [Concomitant]
     Active Substance: UBIDECARENONE
  12. TUMERIC CURCUMIN [Concomitant]
  13. FISH OIL [Concomitant]
     Active Substance: FISH OIL
  14. TRANSDERM SCOP [Suspect]
     Active Substance: SCOPOLAMINE
     Indication: MOTION SICKNESS
     Dosage: ?          QUANTITY:7 PATCH(ES);OTHER FREQUENCY:EVERY 3 DAYS;?
     Route: 062
     Dates: start: 20170512, end: 20170525
  15. ALBUTEROL IPPB [Concomitant]
  16. PROAIR HFA [Concomitant]
     Active Substance: ALBUTEROL SULFATE
  17. MOTRIN [Concomitant]
     Active Substance: IBUPROFEN
  18. VITAMIN D [Concomitant]
     Active Substance: CHOLECALCIFEROL

REACTIONS (9)
  - Nausea [None]
  - Headache [None]
  - Muscular weakness [None]
  - Dizziness [None]
  - Vision blurred [None]
  - Therapy cessation [None]
  - Vertigo [None]
  - Hypoaesthesia [None]
  - Balance disorder [None]

NARRATIVE: CASE EVENT DATE: 20170525
